FAERS Safety Report 15899556 (Version 1)
Quarter: 2019Q1

REPORT INFORMATION
  Report Type: Spontaneous
  Country: US (occurrence: US)
  Receive Date: 20190201
  Receipt Date: 20190201
  Transmission Date: 20190417
  Serious: No
  Sender: FDA-Public Use
  Company Number: US-009507513-1901USA010981

PATIENT

DRUGS (3)
  1. PEDVAXHIB [Suspect]
     Active Substance: HAEMOPHILUS INFLUENZAE TYPE B CAPSULAR POLYSACCHARIDE MENINGOCOCCAL OUTER MEMBRANE PROTEIN CONJUGATE ANTIGEN
     Indication: PROPHYLAXIS
     Route: 058
     Dates: start: 20190125
  2. STERILE DILUENT (WATER) [Suspect]
     Active Substance: WATER
  3. M-M-R II [Suspect]
     Active Substance: MEASLES VIRUS STRAIN ENDERS^ ATTENUATED EDMONSTON LIVE ANTIGEN\MUMPS VIRUS STRAIN B LEVEL JERYL LYNN LIVE ANTIGEN\RUBELLA VIRUS STRAIN WISTAR RA 27/3 LIVE ANTIGEN
     Indication: PROPHYLAXIS

REACTIONS (4)
  - No adverse event [Unknown]
  - Inappropriate schedule of product administration [Unknown]
  - Product preparation error [Unknown]
  - Interchange of vaccine products [Unknown]

NARRATIVE: CASE EVENT DATE: 20190125
